FAERS Safety Report 7781055-3 (Version None)
Quarter: 2011Q3

REPORT INFORMATION
  Report Type: 
  Country: None (occurrence: None)
  Receive Date: 20110927
  Receipt Date: 20110913
  Transmission Date: 20111222
  Serious: Yes (Disabling, Other)
  Sender: FDA-Public Use
  Company Number: PHHY2011JP58936

PATIENT
  Sex: Female

DRUGS (2)
  1. DIOVAN HCT [Suspect]
     Indication: HYPERTENSION
     Dosage: 1 DF, QD
     Route: 048
     Dates: start: 20090729, end: 20091010
  2. ADALAT [Concomitant]
     Indication: HYPERTENSION
     Dosage: 40 MG, UNK
     Route: 048
     Dates: start: 20041129, end: 20091020

REACTIONS (8)
  - BLOOD PRESSURE DIASTOLIC DECREASED [None]
  - BLOOD CREATININE INCREASED [None]
  - ALANINE AMINOTRANSFERASE INCREASED [None]
  - GENERAL PHYSICAL CONDITION ABNORMAL [None]
  - BLOOD UREA INCREASED [None]
  - BLOOD URIC ACID INCREASED [None]
  - RENAL FAILURE [None]
  - OEDEMA [None]
